FAERS Safety Report 21367441 (Version 1)
Quarter: 2022Q3

REPORT INFORMATION
  Report Type: Report from Study
  Country: MX (occurrence: MX)
  Receive Date: 20220923
  Receipt Date: 20220923
  Transmission Date: 20221027
  Serious: Yes (Other)
  Sender: FDA-Public Use
  Company Number: MX-UCBSA-2022056118

PATIENT
  Sex: Female
  Weight: 26 kg

DRUGS (2)
  1. LEVETIRACETAM [Suspect]
     Active Substance: LEVETIRACETAM
     Indication: Product used for unknown indication
     Dosage: 0.5 MILLIGRAM, 2X/DAY (BID)
  2. LEVETIRACETAM [Suspect]
     Active Substance: LEVETIRACETAM
     Dosage: 0.5 TABLET IN THE MORNING AND 1 TABLET AT NIGHT

REACTIONS (5)
  - Partial seizures with secondary generalisation [Unknown]
  - Attention deficit hyperactivity disorder [Unknown]
  - Reading disorder [Unknown]
  - Dysgraphia [Unknown]
  - Off label use [Unknown]
